FAERS Safety Report 24114790 (Version 1)
Quarter: 2024Q3

REPORT INFORMATION
  Report Type: Spontaneous
  Country: US (occurrence: US)
  Receive Date: 20240721
  Receipt Date: 20240721
  Transmission Date: 20241016
  Serious: Yes (Hospitalization, Other)
  Sender: DR REDDYS
  Company Number: US-DRL-USA-LIT/USA/24/0010466

PATIENT
  Age: 30 Year
  Sex: Male

DRUGS (4)
  1. FLUOXETINE [Suspect]
     Active Substance: FLUOXETINE HYDROCHLORIDE
     Indication: Major depression
  2. OLANZAPINE [Suspect]
     Active Substance: OLANZAPINE
     Indication: Major depression
  3. LORAZEPAM [Concomitant]
     Active Substance: LORAZEPAM
     Indication: Major depression
  4. CLONAZEPAM [Concomitant]
     Active Substance: CLONAZEPAM
     Indication: Major depression

REACTIONS (1)
  - Drug ineffective [Unknown]
